FAERS Safety Report 8109307 (Version 3)
Quarter: 2013Q4

REPORT INFORMATION
  Report Type: Spontaneous
  Country: US (occurrence: US)
  Receive Date: 20110826
  Receipt Date: 20131202
  Transmission Date: 20140711
  Serious: Yes (Hospitalization)
  Sender: FDA-Public Use
  Company Number: US-BAYER-2011-075263

PATIENT
  Age: 18 Year
  Sex: Female

DRUGS (8)
  1. YAZ [Suspect]
     Indication: MENSTRUATION IRREGULAR
     Dosage: UNK
     Dates: start: 200704, end: 200706
  2. YASMIN [Suspect]
     Indication: MENSTRUATION IRREGULAR
     Dosage: UNK
     Dates: start: 200610, end: 200704
  3. METFORMIN [Concomitant]
     Dosage: 500 MG, UNK
     Route: 048
     Dates: start: 20060726
  4. VICODIN [Concomitant]
     Indication: PAIN
     Dosage: 5-500 MG
     Route: 048
     Dates: start: 20091107
  5. PHENERGAN [Concomitant]
     Indication: NAUSEA
     Dosage: 25 MG, UNK
     Route: 048
     Dates: start: 20091107
  6. LOESTRIN [Concomitant]
  7. GLUCOPHAGE [Concomitant]
  8. IBUPROFEN [Concomitant]

REACTIONS (5)
  - Gallbladder injury [Unknown]
  - Cholecystitis chronic [None]
  - Injury [Unknown]
  - Pain [Unknown]
  - Off label use [None]
